FAERS Safety Report 9490489 (Version 1)
Quarter: 2013Q3

REPORT INFORMATION
  Report Type: Spontaneous
  Country: US (occurrence: None)
  Receive Date: 20130827
  Receipt Date: 20130827
  Transmission Date: 20140515
  Serious: Yes (Disabling)
  Sender: FDA-Public Use
  Company Number: None

PATIENT
  Age: 62 None
  Sex: Female
  Weight: 95.26 kg

DRUGS (5)
  1. THYROXINE [Suspect]
     Indication: HYPOTHYROIDISM
     Route: 048
     Dates: start: 20130520, end: 20130724
  2. VITAMIN D [Concomitant]
  3. ESTRADIOL [Concomitant]
  4. PROMETRIUM [Concomitant]
  5. CYSTONE [Concomitant]

REACTIONS (8)
  - Fibromyalgia [None]
  - Irritable bowel syndrome [None]
  - Balance disorder [None]
  - Thinking abnormal [None]
  - Memory impairment [None]
  - Weight increased [None]
  - Depression [None]
  - Product substitution issue [None]
